FAERS Safety Report 4668384-7 (Version None)
Quarter: 2005Q2

REPORT INFORMATION
  Report Type: 
  Country: None (occurrence: None)
  Receive Date: 20050518
  Receipt Date: 20050425
  Transmission Date: 20051028
  Serious: Yes (Other)
  Sender: FDA-Public Use
  Company Number: B0351206A

PATIENT
  Age: 30 Year
  Sex: Male

DRUGS (5)
  1. PAXIL [Suspect]
     Dosage: UNK/ SEE DOSAGE TEXT
     Route: 065
  2. DIAZEPAM [Concomitant]
  3. QUETIAPINE [Concomitant]
  4. LITHIUM CARBONATE [Concomitant]
  5. ZOLPIDEM [Concomitant]

REACTIONS (11)
  - AGGRESSION [None]
  - AMNESIA [None]
  - ANGER [None]
  - ANXIETY [None]
  - DEATH OF COMPANION [None]
  - INTENTIONAL MISUSE [None]
  - INTENTIONAL SELF-INJURY [None]
  - LACERATION [None]
  - PHYSICAL ASSAULT [None]
  - SPOUSAL ABUSE [None]
  - SUICIDE ATTEMPT [None]
